FAERS Safety Report 11178584 (Version 1)
Quarter: 2015Q2

REPORT INFORMATION
  Report Type: Spontaneous
  Country: US (occurrence: US)
  Receive Date: 20150610
  Receipt Date: 20150610
  Transmission Date: 20150821
  Serious: Yes (Hospitalization)
  Sender: FDA-Public Use
  Company Number: US-SA-2015SA077766

PATIENT
  Age: 57 Year
  Sex: Male

DRUGS (30)
  1. OXALIPLATIN. [Suspect]
     Active Substance: OXALIPLATIN
     Indication: HEPATIC CANCER RECURRENT
     Dosage: DAY 1 AND 15 OVER 2 HOURS REPEATED EVERY 4 WEEKS
     Route: 042
  2. CALCIUM FOLINATE [Suspect]
     Active Substance: LEUCOVORIN CALCIUM
     Indication: HEPATIC CANCER RECURRENT
     Dosage: OVER 24 HOURS; ON DAY 1,8 AND 15; REPEATED EVERY 4 WEEKS
     Route: 042
     Dates: start: 2007, end: 2007
  3. FLOXURIDINE. [Suspect]
     Active Substance: FLOXURIDINE
     Indication: HEPATIC CANCER RECURRENT
     Dosage: OVER 24 HOURS ON DAY 1, 8, 15 REPEATED EVERY 4 WEEKS
     Route: 042
  4. FLOXURIDINE. [Suspect]
     Active Substance: FLOXURIDINE
     Indication: ADENOCARCINOMA GASTRIC
     Dosage: OVER 24 HOURS ON DAY 1, 8, 15 REPEATED EVERY 4 WEEKS
     Route: 042
  5. DOCETAXEL. [Suspect]
     Active Substance: DOCETAXEL
     Indication: ADENOCARCINOMA GASTRIC
     Dosage: OVER 30 MINUTES; ON DAY 1,8 AND 15; REPEATED EVERY 4 WEEKS
     Route: 042
  6. CALCIUM FOLINATE [Suspect]
     Active Substance: LEUCOVORIN CALCIUM
     Indication: ADENOCARCINOMA GASTRIC
     Dosage: OVER 24 HOURS; ON DAY 1,8 AND 15; REPEATED EVERY 4 WEEKS
     Route: 042
  7. FLOXURIDINE. [Suspect]
     Active Substance: FLOXURIDINE
     Indication: ADENOCARCINOMA GASTRIC
     Dosage: OVER 24 HOURS ON DAY 1, 8, 15 REPEATED EVERY 4 WEEKS
     Route: 042
  8. FLOXURIDINE. [Suspect]
     Active Substance: FLOXURIDINE
     Indication: ADENOCARCINOMA GASTRIC
     Dosage: OVER 24 HOURS ON DAY 1, 8, 15 REPEATED EVERY 4 WEEKS
     Route: 042
     Dates: start: 2007, end: 2007
  9. FLOXURIDINE. [Suspect]
     Active Substance: FLOXURIDINE
     Indication: HEPATIC CANCER RECURRENT
     Dosage: OVER 24 HOURS ON DAY 1, 8, 15 REPEATED EVERY 4 WEEKS
     Route: 042
     Dates: start: 2007, end: 2007
  10. CALCIUM FOLINATE [Suspect]
     Active Substance: LEUCOVORIN CALCIUM
     Indication: HEPATIC CANCER RECURRENT
     Dosage: OVER 24 HOURS; ON DAY 1,8 AND 15; REPEATED EVERY 4 WEEKS
     Route: 042
  11. CALCIUM FOLINATE [Suspect]
     Active Substance: LEUCOVORIN CALCIUM
     Indication: ADENOCARCINOMA GASTRIC
     Dosage: OVER 24 HOURS; ON DAY 1,8 AND 15; REPEATED EVERY 4 WEEKS
     Route: 042
     Dates: start: 2007, end: 2007
  12. CALCIUM FOLINATE [Suspect]
     Active Substance: LEUCOVORIN CALCIUM
     Indication: HEPATIC CANCER RECURRENT
     Dosage: OVER 24 HOURS; ON DAY 1,8 AND 15; REPEATED EVERY 4 WEEKS
     Route: 042
  13. OXALIPLATIN. [Suspect]
     Active Substance: OXALIPLATIN
     Indication: ADENOCARCINOMA GASTRIC
     Dosage: DAY 1 AND 15 OVER 2 HOURS REPEATED EVERY 4 WEEKS
     Route: 042
  14. DOCETAXEL. [Suspect]
     Active Substance: DOCETAXEL
     Indication: ADENOCARCINOMA GASTRIC
     Dosage: OVER 30 MINUTES; ON DAY 1,8 AND 15; REPEATED EVERY 4 WEEKS
     Route: 042
  15. CALCIUM FOLINATE [Suspect]
     Active Substance: LEUCOVORIN CALCIUM
     Indication: HEPATIC CANCER RECURRENT
     Route: 065
     Dates: start: 2007
  16. FLOXURIDINE. [Suspect]
     Active Substance: FLOXURIDINE
     Indication: ADENOCARCINOMA GASTRIC
     Route: 065
     Dates: start: 2007, end: 2007
  17. DOCETAXEL. [Suspect]
     Active Substance: DOCETAXEL
     Indication: ADENOCARCINOMA GASTRIC
     Dosage: OVER 30 MINUTES; ON DAY 1,8 AND 15; REPEATED EVERY 4 WEEKS
     Route: 042
     Dates: start: 2007, end: 2007
  18. CISPLATIN. [Concomitant]
     Active Substance: CISPLATIN
     Dates: start: 2007
  19. OXALIPLATIN. [Suspect]
     Active Substance: OXALIPLATIN
     Indication: ADENOCARCINOMA GASTRIC
     Dosage: DAY 1 AND 15 OVER 2 HOURS REPEATED EVERY 4 WEEKS
     Route: 042
     Dates: start: 2007, end: 2007
  20. DOCETAXEL. [Suspect]
     Active Substance: DOCETAXEL
     Indication: HEPATIC CANCER RECURRENT
     Dosage: OVER 30 MINUTES; ON DAY 1,8 AND 15; REPEATED EVERY 4 WEEKS
     Route: 042
  21. DOCETAXEL. [Suspect]
     Active Substance: DOCETAXEL
     Indication: HEPATIC CANCER RECURRENT
     Dosage: OVER 30 MINUTES; ON DAY 1,8 AND 15; REPEATED EVERY 4 WEEKS
     Route: 042
     Dates: start: 2007, end: 2007
  22. DOCETAXEL. [Suspect]
     Active Substance: DOCETAXEL
     Indication: HEPATIC CANCER RECURRENT
     Dosage: OVER 30 MINUTES; ON DAY 1,8 AND 15; REPEATED EVERY 4 WEEKS
     Route: 042
  23. OXALIPLATIN. [Suspect]
     Active Substance: OXALIPLATIN
     Indication: ADENOCARCINOMA GASTRIC
     Dosage: DAY 1 AND 15 OVER 2 HOURS REPEATED EVERY 4 WEEKS
     Route: 042
  24. CALCIUM FOLINATE [Suspect]
     Active Substance: LEUCOVORIN CALCIUM
     Indication: ADENOCARCINOMA GASTRIC
     Route: 065
     Dates: start: 2007
  25. CALCIUM FOLINATE [Suspect]
     Active Substance: LEUCOVORIN CALCIUM
     Indication: ADENOCARCINOMA GASTRIC
     Dosage: OVER 24 HOURS; ON DAY 1,8 AND 15; REPEATED EVERY 4 WEEKS
     Route: 042
  26. FLOXURIDINE. [Suspect]
     Active Substance: FLOXURIDINE
     Indication: HEPATIC CANCER RECURRENT
     Route: 065
     Dates: start: 2007, end: 2007
  27. FLOXURIDINE. [Suspect]
     Active Substance: FLOXURIDINE
     Indication: HEPATIC CANCER RECURRENT
     Dosage: OVER 24 HOURS ON DAY 1, 8, 15 REPEATED EVERY 4 WEEKS
     Route: 042
  28. OXALIPLATIN. [Suspect]
     Active Substance: OXALIPLATIN
     Indication: HEPATIC CANCER RECURRENT
     Dosage: DAY 1 AND 15 OVER 2 HOURS REPEATED EVERY 4 WEEKS
     Route: 042
  29. OXALIPLATIN. [Suspect]
     Active Substance: OXALIPLATIN
     Indication: HEPATIC CANCER RECURRENT
     Dosage: DAY 1 AND 15 OVER 2 HOURS REPEATED EVERY 4 WEEKS
     Route: 042
     Dates: start: 2007, end: 2007
  30. PACLITAXEL. [Concomitant]
     Active Substance: PACLITAXEL
     Dates: start: 2007

REACTIONS (28)
  - Vomiting [Recovered/Resolved]
  - Atrial fibrillation [Unknown]
  - Metabolic acidosis [Recovered/Resolved]
  - Hypocalcaemia [Recovered/Resolved]
  - Arrhythmia [Unknown]
  - Blood bicarbonate decreased [Recovered/Resolved]
  - Hyperphosphataemia [Recovered/Resolved]
  - Nausea [Recovered/Resolved]
  - Pallor [Recovered/Resolved]
  - Bundle branch block left [Unknown]
  - Azotaemia [Not Recovered/Not Resolved]
  - Blood urea increased [Recovering/Resolving]
  - Asthenia [Recovered/Resolved]
  - Blood pressure decreased [Unknown]
  - Electrolyte imbalance [Recovered/Resolved]
  - Glomerular filtration rate increased [Recovering/Resolving]
  - Product use issue [Unknown]
  - Tumour lysis syndrome [Recovered/Resolved]
  - Oliguria [Recovered/Resolved]
  - Blood pH decreased [Recovered/Resolved]
  - Acute kidney injury [Recovering/Resolving]
  - Blood creatinine increased [Recovering/Resolving]
  - General physical health deterioration [Recovered/Resolved]
  - Electrocardiogram abnormal [Unknown]
  - Tachycardia [Unknown]
  - Body temperature decreased [Recovered/Resolved]
  - Hyperkalaemia [Recovered/Resolved]
  - Hyperuricaemia [Not Recovered/Not Resolved]
